FAERS Safety Report 12829246 (Version 1)
Quarter: 2016Q4

REPORT INFORMATION
  Report Type: Spontaneous
  Country: US (occurrence: US)
  Receive Date: 20161007
  Receipt Date: 20161007
  Transmission Date: 20170207
  Serious: No
  Sender: FDA-Public Use
  Company Number: US-SA-2016SA018645

PATIENT
  Age: 53 Year

DRUGS (10)
  1. CLARITIN [Concomitant]
     Active Substance: LORATADINE
  2. LAMICTAL [Concomitant]
     Active Substance: LAMOTRIGINE
  3. ATIVAN [Concomitant]
     Active Substance: LORAZEPAM
  4. PANTHENOL/RETINOL/THIAMINE HYDROCHLORIDE/ASCORBIC ACID/ERGOCALCIFEROL/FOLIC ACID/RIBOFLAVIN/NICOTINA [Concomitant]
  5. PROVIGIL [Concomitant]
     Active Substance: MODAFINIL
  6. LIPITOR [Concomitant]
     Active Substance: ATORVASTATIN CALCIUM
  7. AUBAGIO [Suspect]
     Active Substance: TERIFLUNOMIDE
     Indication: MULTIPLE SCLEROSIS
     Route: 048
     Dates: start: 20150310, end: 201510
  8. AUBAGIO [Suspect]
     Active Substance: TERIFLUNOMIDE
     Indication: MULTIPLE SCLEROSIS
     Route: 048
     Dates: start: 201512
  9. FLOVENT [Concomitant]
     Active Substance: FLUTICASONE PROPIONATE
  10. LEXAPRO [Concomitant]
     Active Substance: ESCITALOPRAM OXALATE

REACTIONS (1)
  - Diarrhoea [Recovered/Resolved]

NARRATIVE: CASE EVENT DATE: 201503
